FAERS Safety Report 4859832-8 (Version None)
Quarter: 2005Q4

REPORT INFORMATION
  Report Type: 
  Country: None (occurrence: None)
  Receive Date: 20051219
  Receipt Date: 20051115
  Transmission Date: 20060501
  Serious: Yes (Hospitalization)
  Sender: FDA-Public Use
  Company Number: SE-GLAXOSMITHKLINE-B0403932A

PATIENT
  Sex: Male

DRUGS (1)
  1. ROSIGLITAZONE [Suspect]

REACTIONS (2)
  - EYE PAIN [None]
  - THYROIDITIS [None]
